FAERS Safety Report 7731754-4 (Version None)
Quarter: 2011Q3

REPORT INFORMATION
  Report Type: 
  Country: None (occurrence: None)
  Receive Date: 20110906
  Receipt Date: 20110825
  Transmission Date: 20111222
  Serious: Yes (Other)
  Sender: FDA-Public Use
  Company Number: PHHY2011US76764

PATIENT
  Age: 7 Year
  Sex: Male
  Weight: 30.8 kg

DRUGS (7)
  1. LAMOTRIGINE [Concomitant]
     Dosage: UNK UKN, UNK
  2. ENALAPRIL MALEATE [Concomitant]
     Dosage: UNK UKN, UNK
  3. ATENOLOL [Concomitant]
     Dosage: UNK UKN, UNK
  4. METHYLPHENIDATE [Suspect]
     Dosage: UNK UKN, UNK
  5. RISPERIDONE [Concomitant]
     Dosage: UNK UKN, UNK
  6. GABAPENTIN [Concomitant]
     Dosage: UNK UKN, UNK
  7. VALPROIC ACID [Concomitant]
     Dosage: UNK UKN, UNK

REACTIONS (2)
  - DRUG HYPERSENSITIVITY [None]
  - ANAPHYLACTIC REACTION [None]
